FAERS Safety Report 5606531-0 (Version None)
Quarter: 2008Q1

REPORT INFORMATION
  Report Type: 
  Country: None (occurrence: None)
  Receive Date: 20080129
  Receipt Date: 20080118
  Transmission Date: 20080703
  Serious: Yes (Other)
  Sender: FDA-Public Use
  Company Number: B0505524A

PATIENT
  Sex: Female

DRUGS (2)
  1. FORMIGRAN [Suspect]
     Indication: MIGRAINE
     Route: 048
  2. CONTRACEPTIVE PILL [Concomitant]

REACTIONS (1)
  - UNINTENDED PREGNANCY [None]
